FAERS Safety Report 24804192 (Version 1)
Quarter: 2025Q1

REPORT INFORMATION
  Report Type: Spontaneous
  Country: IN (occurrence: IN)
  Receive Date: 20250103
  Receipt Date: 20250103
  Transmission Date: 20250409
  Serious: Yes (Hospitalization, Other)
  Sender: Steriscience PTE
  Company Number: IN-STERISCIENCE B.V.-2024-ST-002224

PATIENT
  Age: 51 Year
  Sex: Female

DRUGS (14)
  1. GANCICLOVIR SODIUM [Suspect]
     Active Substance: GANCICLOVIR SODIUM
     Indication: Prophylaxis
     Route: 065
     Dates: start: 202303
  2. GANCICLOVIR SODIUM [Suspect]
     Active Substance: GANCICLOVIR SODIUM
     Indication: Cytomegalovirus colitis
     Route: 042
     Dates: start: 2023
  3. GANCICLOVIR SODIUM [Suspect]
     Active Substance: GANCICLOVIR SODIUM
     Route: 042
     Dates: start: 2023
  4. MYCOPHENOLATE MOFETIL [Suspect]
     Active Substance: MYCOPHENOLATE MOFETIL
     Indication: Renal and pancreas transplant
     Route: 065
     Dates: start: 202210
  5. VALGANCICLOVIR [Concomitant]
     Active Substance: VALGANCICLOVIR
     Indication: Prophylaxis
     Route: 048
     Dates: start: 2022
  6. VALGANCICLOVIR [Concomitant]
     Active Substance: VALGANCICLOVIR
     Route: 048
     Dates: start: 202302
  7. MARIBAVIR [Concomitant]
     Active Substance: MARIBAVIR
     Indication: Prophylaxis
     Route: 048
     Dates: start: 202303
  8. TACROLIMUS [Concomitant]
     Active Substance: TACROLIMUS
     Indication: Immunosuppressant drug therapy
     Route: 065
     Dates: start: 202210, end: 202304
  9. TACROLIMUS [Concomitant]
     Active Substance: TACROLIMUS
     Route: 065
     Dates: start: 202304
  10. TACROLIMUS [Concomitant]
     Active Substance: TACROLIMUS
     Route: 065
     Dates: start: 202304
  11. PREDNISONE [Concomitant]
     Active Substance: PREDNISONE
     Indication: Immunosuppressant drug therapy
     Route: 065
     Dates: start: 202210, end: 202304
  12. PREDNISONE [Concomitant]
     Active Substance: PREDNISONE
     Route: 065
     Dates: start: 202304
  13. PREDNISONE [Concomitant]
     Active Substance: PREDNISONE
     Route: 065
     Dates: start: 202304
  14. COTRIMOXAZOLE [Concomitant]
     Active Substance: SULFAMETHOXAZOLE\TRIMETHOPRIM
     Indication: Product used for unknown indication
     Route: 065
     Dates: start: 202210

REACTIONS (6)
  - Viral load increased [Unknown]
  - Condition aggravated [Unknown]
  - Drug ineffective for unapproved indication [Unknown]
  - Drug ineffective [Unknown]
  - Drug resistance [Unknown]
  - Off label use [Unknown]

NARRATIVE: CASE EVENT DATE: 20230101
